FAERS Safety Report 20148186 (Version 6)
Quarter: 2022Q1

REPORT INFORMATION
  Report Type: Report from Study
  Country: US (occurrence: US)
  Receive Date: 20211204
  Receipt Date: 20220206
  Transmission Date: 20220423
  Serious: Yes (Hospitalization, Other)
  Sender: FDA-Public Use
  Company Number: US-NOVARTISTESTPH-NVSC2021US277008

PATIENT
  Sex: Female

DRUGS (2)
  1. ENTRESTO [Suspect]
     Active Substance: SACUBITRIL\VALSARTAN
     Indication: Product used for unknown indication
     Dosage: 1 DOSAGE FORM, BID(24/26 MG)
     Route: 065
     Dates: start: 202104
  2. TRAMADOL [Suspect]
     Active Substance: TRAMADOL
     Indication: Back pain
     Dosage: 150 MG, BID (PAST 10 YEARS, 3 TABLETS)
     Route: 065
     Dates: start: 2012

REACTIONS (17)
  - Hepatic failure [Recovering/Resolving]
  - Gastric haemorrhage [Not Recovered/Not Resolved]
  - Gastric mucosal lesion [Unknown]
  - Vomiting [Not Recovered/Not Resolved]
  - Haematochezia [Unknown]
  - Confusional state [Not Recovered/Not Resolved]
  - Urinary tract infection [Not Recovered/Not Resolved]
  - Full blood count decreased [Not Recovered/Not Resolved]
  - Weight fluctuation [Recovering/Resolving]
  - Decreased appetite [Recovering/Resolving]
  - Abdominal pain upper [Not Recovered/Not Resolved]
  - Mental status changes [Recovered/Resolved]
  - Neck pain [Recovering/Resolving]
  - Cardiac disorder [Unknown]
  - Eating disorder [Unknown]
  - Back pain [Not Recovered/Not Resolved]
  - Asthenia [Recovering/Resolving]

NARRATIVE: CASE EVENT DATE: 20120101
